FAERS Safety Report 9112532 (Version 3)
Quarter: 2013Q1

REPORT INFORMATION
  Report Type: Spontaneous
  Country: US (occurrence: US)
  Receive Date: 20130211
  Receipt Date: 20130306
  Transmission Date: 20140127
  Serious: Yes (Hospitalization, Other)
  Sender: FDA-Public Use
  Company Number: US-BAXTER-2013BAX004952

PATIENT
  Age: 62 None
  Sex: Male
  Weight: 85.81 kg

DRUGS (1)
  1. DIANEAL LOW CALCIUM [Suspect]
     Indication: PERITONEAL DIALYSIS
     Route: 033

REACTIONS (4)
  - Pneumonia [Recovered/Resolved]
  - Syringomyelia [Recovering/Resolving]
  - Cardiac disorder [Recovering/Resolving]
  - Sepsis [Recovering/Resolving]
